FAERS Safety Report 20328965 (Version 1)
Quarter: 2022Q1

REPORT INFORMATION
  Report Type: Spontaneous
  Country: AU (occurrence: AU)
  Receive Date: 20220112
  Receipt Date: 20220112
  Transmission Date: 20220423
  Serious: Yes (Other)
  Sender: FDA-Public Use
  Company Number: AU-ABBVIE-22K-008-4224482-00

PATIENT
  Age: 9 Year
  Sex: Female

DRUGS (2)
  1. VALPROATE SODIUM [Suspect]
     Active Substance: VALPROATE SODIUM
     Indication: Product used for unknown indication
     Route: 065
  2. CLOBAZAM [Suspect]
     Active Substance: CLOBAZAM
     Indication: Generalised tonic-clonic seizure
     Route: 065

REACTIONS (7)
  - Central-alveolar hypoventilation [Recovering/Resolving]
  - Depressed level of consciousness [Unknown]
  - Apnoea test abnormal [Unknown]
  - Respiratory acidosis [Unknown]
  - Somnolence [Recovering/Resolving]
  - Lethargy [Unknown]
  - Somnolence [Unknown]
